FAERS Safety Report 7669236-0 (Version None)
Quarter: 2011Q3

REPORT INFORMATION
  Report Type: 
  Country: None (occurrence: None)
  Receive Date: 20110808
  Receipt Date: 20110729
  Transmission Date: 20111222
  Serious: Yes (Other)
  Sender: FDA-Public Use
  Company Number: PHEH2009US03018

PATIENT
  Sex: Male

DRUGS (10)
  1. LASIX [Concomitant]
  2. PENICILLIN ^GRUNENTHAL^ [Concomitant]
  3. LISINOPRIL [Concomitant]
  4. ATENOLOL [Concomitant]
  5. RADIOTHERAPY [Concomitant]
  6. ARANESP [Concomitant]
  7. REVLIMID [Concomitant]
  8. ZOMETA [Suspect]
  9. DECADRON [Concomitant]
  10. AMBIEN [Concomitant]

REACTIONS (51)
  - SPINAL OSTEOARTHRITIS [None]
  - MUSCLE SPASMS [None]
  - RENAL CYST [None]
  - BLADDER DIVERTICULUM [None]
  - OSTEITIS [None]
  - MALIGNANT MELANOMA [None]
  - PAIN IN EXTREMITY [None]
  - DIPLOPIA [None]
  - INJURY [None]
  - PLEURAL EFFUSION [None]
  - OSTEOLYSIS [None]
  - INFECTION [None]
  - HYPOAESTHESIA [None]
  - FATIGUE [None]
  - SCOLIOSIS [None]
  - ARTHRALGIA [None]
  - EMOTIONAL DISTRESS [None]
  - BRONCHITIS [None]
  - CARDIOMEGALY [None]
  - CHEST PAIN [None]
  - DYSPHAGIA [None]
  - ATAXIA [None]
  - BONE PAIN [None]
  - NEUROPATHY PERIPHERAL [None]
  - DYSPNOEA EXERTIONAL [None]
  - SENSORY LOSS [None]
  - ATELECTASIS [None]
  - INTERVERTEBRAL DISC DEGENERATION [None]
  - MULTIPLE MYELOMA [None]
  - ANXIETY [None]
  - SPINAL COMPRESSION FRACTURE [None]
  - CONJUNCTIVAL HAEMORRHAGE [None]
  - CHRONIC SINUSITIS [None]
  - PAIN [None]
  - PHYSICAL DISABILITY [None]
  - ANAEMIA [None]
  - RECTAL ULCER [None]
  - HAEMOPTYSIS [None]
  - OROPHARYNGEAL PAIN [None]
  - PROSTATOMEGALY [None]
  - OSTEOPENIA [None]
  - PYREXIA [None]
  - CHRONIC OBSTRUCTIVE PULMONARY DISEASE [None]
  - CARDIAC FAILURE CONGESTIVE [None]
  - NEOPLASM MALIGNANT [None]
  - TRANSIENT ISCHAEMIC ATTACK [None]
  - OSTEONECROSIS OF JAW [None]
  - DEFORMITY [None]
  - PANCYTOPENIA [None]
  - INSOMNIA [None]
  - OSTEOARTHRITIS [None]
